FAERS Safety Report 4370196-9 (Version None)
Quarter: 2004Q2

REPORT INFORMATION
  Report Type: 
  Country: None (occurrence: None)
  Receive Date: 20040603
  Receipt Date: 20040413
  Transmission Date: 20050107
  Serious: No
  Sender: FDA-Public Use
  Company Number: US-BRISTOL-MYERS SQUIBB COMPANY-12558623

PATIENT
  Age: 5 Day
  Sex: Female
  Weight: 77 kg

DRUGS (3)
  1. ABILIFY [Suspect]
     Dosage: 1/2 OF A 5 MG TAB
     Route: 048
  2. EFFEXOR [Concomitant]
  3. ZYPREXA [Concomitant]

REACTIONS (1)
  - NERVOUSNESS [None]
